FAERS Safety Report 10785273 (Version 1)
Quarter: 2015Q1

REPORT INFORMATION
  Report Type: Spontaneous
  Country: US (occurrence: US)
  Receive Date: 20150211
  Receipt Date: 20150211
  Transmission Date: 20150721
  Serious: No
  Sender: FDA-Public Use
  Company Number: US-BAYER-2015-013979

PATIENT
  Age: 54 Year
  Sex: Female
  Weight: 58 kg

DRUGS (3)
  1. ADVIL [Suspect]
     Active Substance: IBUPROFEN
  2. TOPAMAX [Suspect]
     Active Substance: TOPIRAMATE
  3. ALEVE [Suspect]
     Active Substance: NAPROXEN SODIUM
     Indication: MIGRAINE

REACTIONS (4)
  - Off label use [None]
  - Drug withdrawal syndrome [Unknown]
  - Drug ineffective [None]
  - Migraine [Unknown]
